FAERS Safety Report 14086737 (Version 2)
Quarter: 2017Q4

REPORT INFORMATION
  Report Type: Spontaneous
  Country: US (occurrence: US)
  Receive Date: 20171013
  Receipt Date: 20171016
  Transmission Date: 20180321
  Serious: Yes (Life-Threatening)
  Sender: FDA-Public Use
  Company Number: US-B.I. PHARMACEUTICALS,INC./RIDGEFIELD-2017-BI-055273

PATIENT
  Age: 76 Year
  Sex: Female

DRUGS (5)
  1. HYDROCHLOROTHYAZIDE [Concomitant]
     Active Substance: HYDROCHLOROTHIAZIDE
     Indication: HYPERTENSION
     Dosage: ONCE DAILY;  FORM STRENGTH: 25MG; FORMULATION: TABLET
     Route: 048
  2. MONTELUKAST [Concomitant]
     Active Substance: MONTELUKAST SODIUM
     Indication: PRODUCT USED FOR UNKNOWN INDICATION
     Dosage: ONCE NIGHTLY;  FORM STRENGTH: 10MG; FORMULATION: TABLET
     Route: 048
  3. SPIRIVA [Suspect]
     Active Substance: TIOTROPIUM BROMIDE MONOHYDRATE
     Indication: CHRONIC OBSTRUCTIVE PULMONARY DISEASE
     Dosage: ONCE DAILY;  FORM STRENGTH: 18 MCG; FORMULATION: CAPSULE? ADMINISTRATION CORRECT? YES ?ACTION(S) TAK
     Route: 055
     Dates: start: 201512
  4. SEREVENT DISKUS [Concomitant]
     Active Substance: SALMETEROL XINAFOATE
     Indication: PRODUCT USED FOR UNKNOWN INDICATION
     Dosage: ONCE DAILY;  FORM STRENGTH: 50MCG
     Route: 055
  5. DIAZEPAM. [Concomitant]
     Active Substance: DIAZEPAM
     Indication: MENIERE^S DISEASE
     Dosage: 1/2 TABLET THREE TIMES DAILY;  FORM STRENGTH: 2MG; FORMULATION: TABLET
     Route: 048

REACTIONS (4)
  - Ventricular tachycardia [Unknown]
  - Dyspnoea [Not Recovered/Not Resolved]
  - Ventricular septal defect [Unknown]
  - Fatigue [Not Recovered/Not Resolved]

NARRATIVE: CASE EVENT DATE: 201708
